FAERS Safety Report 7765623-0 (Version None)
Quarter: 2011Q3

REPORT INFORMATION
  Report Type: 
  Country: None (occurrence: None)
  Receive Date: 20110921
  Receipt Date: 20110919
  Transmission Date: 20111222
  Serious: Yes (Hospitalization, Other)
  Sender: FDA-Public Use
  Company Number: US-TEVA-301412USA

PATIENT
  Sex: Female

DRUGS (5)
  1. FOLIC ACID [Concomitant]
  2. METHOTREXATE [Suspect]
     Dosage: 1.0714 MILLIGRAM;
     Dates: start: 20110121, end: 20110830
  3. ABATACEPT [Suspect]
     Route: 058
     Dates: start: 20100420, end: 20110830
  4. TEMAZEPAM [Concomitant]
     Dates: start: 20110615
  5. ADALIMUMAB [Suspect]
     Route: 058
     Dates: start: 20100420, end: 20110830

REACTIONS (2)
  - LEUKAEMIA [None]
  - PERITONSILLAR ABSCESS [None]
